FAERS Safety Report 12732525 (Version 1)
Quarter: 2016Q3

REPORT INFORMATION
  Report Type: Spontaneous
  Country: US (occurrence: US)
  Receive Date: 20160912
  Receipt Date: 20160912
  Transmission Date: 20161109
  Serious: Yes (Disabling)
  Sender: FDA-Public Use
  Company Number: None

PATIENT
  Age: 65 Year
  Sex: Female
  Weight: 68.1 kg

DRUGS (2)
  1. ESZOPICLONE. [Suspect]
     Active Substance: ESZOPICLONE
     Dosage: 3 MG AT BEDTIME - BLUE DYE
  2. CARBIDOPA/LEVODOPA [Suspect]
     Active Substance: CARBIDOPA\LEVODOPA
     Dosage: 25/100 2 TABS - 4X A DAY 4 TIMES A DAY MOUTH
     Route: 048

REACTIONS (6)
  - Respiratory tract infection [None]
  - Sialoadenitis [None]
  - Respiratory syncytial virus infection [None]
  - Clostridium difficile infection [None]
  - Reaction to azo-dyes [None]
  - Drug ineffective [None]
